FAERS Safety Report 22271009 (Version 3)
Quarter: 2023Q2

REPORT INFORMATION
  Report Type: Spontaneous
  Country: US (occurrence: US)
  Receive Date: 20230501
  Receipt Date: 20230503
  Transmission Date: 20230721
  Serious: No
  Sender: FDA-Public Use
  Company Number: US-BIOGEN-2022BI01159892

PATIENT
  Age: 71 Year
  Sex: Female

DRUGS (13)
  1. VUMERITY [Suspect]
     Active Substance: DIROXIMEL FUMARATE
     Indication: Multiple sclerosis
     Dosage: TAKE 2 CAPSULES (462MG) BY MOUTH TWICE DAILY.
     Route: 050
  2. VUMERITY [Suspect]
     Active Substance: DIROXIMEL FUMARATE
     Dosage: FOR 1 MONTH
     Route: 050
  3. VUMERITY [Suspect]
     Active Substance: DIROXIMEL FUMARATE
     Route: 050
     Dates: start: 20210929, end: 20221101
  4. VITAMIN D3 [Concomitant]
     Active Substance: CHOLECALCIFEROL
     Route: 050
  5. CELECOXIB [Concomitant]
     Active Substance: CELECOXIB
     Route: 050
  6. SOLIFENACIN SUCCINATE [Concomitant]
     Active Substance: SOLIFENACIN SUCCINATE
     Route: 050
  7. VITAMIN B2 [Concomitant]
     Active Substance: RIBOFLAVIN
     Route: 050
  8. SOTALOL [Concomitant]
     Active Substance: SOTALOL
     Route: 050
  9. WARFARIN SODIUM [Concomitant]
     Active Substance: WARFARIN SODIUM
     Route: 050
  10. METHIMAZOLE [Concomitant]
     Active Substance: METHIMAZOLE
     Route: 050
  11. CLARITIN [Concomitant]
     Active Substance: LORATADINE
     Route: 050
  12. DILTIAZEM HYDROCHLORIDE [Concomitant]
     Active Substance: DILTIAZEM HYDROCHLORIDE
     Route: 050
  13. GABAPENTIN [Concomitant]
     Active Substance: GABAPENTIN
     Route: 050

REACTIONS (2)
  - White blood cell count decreased [Unknown]
  - Lymphocyte count decreased [Unknown]

NARRATIVE: CASE EVENT DATE: 20220801
